FAERS Safety Report 5395435-7 (Version None)
Quarter: 2007Q3

REPORT INFORMATION
  Report Type: 
  Country: None (occurrence: None)
  Receive Date: 20070724
  Receipt Date: 20070717
  Transmission Date: 20080115
  Serious: Yes (Death, Life-Threatening, Hospitalization, Other)
  Sender: FDA-Public Use
  Company Number: HQWYE190430MAR07

PATIENT
  Sex: Male
  Weight: 60 kg

DRUGS (11)
  1. MYLOTARG [Suspect]
     Indication: ACUTE MYELOID LEUKAEMIA
     Route: 041
     Dates: start: 20070131, end: 20070131
  2. MYLOTARG [Suspect]
     Route: 041
     Dates: start: 20070214, end: 20070214
  3. MAGNESIUM OXIDE [Concomitant]
     Route: 048
     Dates: start: 20070118, end: 20070220
  4. ROXATIDINE ACETATE HCL [Concomitant]
     Indication: PROPHYLAXIS
     Route: 048
     Dates: start: 20070118, end: 20070220
  5. GLUCOSE INJECTION [Concomitant]
     Indication: PROPHYLAXIS
     Route: 041
     Dates: start: 20070216, end: 20070223
  6. DIFLUCAN [Concomitant]
     Indication: PROPHYLAXIS
     Route: 048
     Dates: start: 20070118, end: 20070220
  7. VITAMEDIN [Concomitant]
     Indication: PROPHYLAXIS
     Route: 048
     Dates: start: 20070118, end: 20070220
  8. SOLDEM 3 [Concomitant]
     Indication: PROPHYLAXIS
     Route: 041
     Dates: start: 20070129, end: 20070214
  9. STRONG NEO-MINOPHAGEN C [Concomitant]
     Route: 041
     Dates: start: 20070129, end: 20070214
  10. PANTOSIN [Concomitant]
     Route: 048
     Dates: start: 20070118, end: 20070220
  11. SELBEX [Concomitant]
     Indication: PROPHYLAXIS
     Route: 048
     Dates: start: 20070118, end: 20070220

REACTIONS (11)
  - BLOOD UREA INCREASED [None]
  - CEREBRAL HAEMORRHAGE [None]
  - CONDITION AGGRAVATED [None]
  - DISSEMINATED INTRAVASCULAR COAGULATION [None]
  - FEBRILE NEUTROPENIA [None]
  - HYPERNATRAEMIA [None]
  - NEUTROPENIA [None]
  - PNEUMONIA [None]
  - RENAL IMPAIRMENT [None]
  - SEPSIS [None]
  - TACHYCARDIA [None]
